FAERS Safety Report 7458097-0 (Version None)
Quarter: 2011Q2

REPORT INFORMATION
  Report Type: 
  Country: None (occurrence: None)
  Receive Date: 20110504
  Receipt Date: 20110420
  Transmission Date: 20111010
  Serious: Yes (Other)
  Sender: FDA-Public Use
  Company Number: AU-JNJFOC-20110411526

PATIENT
  Sex: Female

DRUGS (9)
  1. CONCERTA [Suspect]
     Indication: OPPOSITIONAL DEFIANT DISORDER
     Route: 048
  2. CONCERTA [Suspect]
     Indication: ANXIETY
     Route: 048
  3. CONCERTA [Suspect]
     Indication: ATTENTION DEFICIT/HYPERACTIVITY DISORDER
     Route: 048
  4. CONCERTA [Suspect]
     Route: 048
  5. CONCERTA [Suspect]
     Route: 048
  6. CONCERTA [Suspect]
     Route: 048
  7. CONCERTA [Suspect]
     Route: 048
  8. CONCERTA [Suspect]
     Route: 048
  9. CONCERTA [Suspect]
     Route: 048

REACTIONS (3)
  - URTICARIA [None]
  - LIP SWELLING [None]
  - EYE SWELLING [None]
